FAERS Safety Report 25505969 (Version 1)
Quarter: 2025Q3

REPORT INFORMATION
  Report Type: Spontaneous
  Country: US (occurrence: US)
  Receive Date: 20250702
  Receipt Date: 20250702
  Transmission Date: 20251020
  Serious: Yes (Hospitalization)
  Sender: Alora Pharma
  Company Number: US-ACELLA PHARMACEUTICALS, LLC-2025ALO02308

PATIENT
  Age: 49 Year
  Sex: Male

DRUGS (6)
  1. BENZONATATE [Suspect]
     Active Substance: BENZONATATE
     Route: 048
  2. VENLAFAXINE [Suspect]
     Active Substance: VENLAFAXINE HYDROCHLORIDE
     Route: 048
  3. LORAZEPAM [Suspect]
     Active Substance: LORAZEPAM
  4. ARIPIPRAZOLE [Suspect]
     Active Substance: ARIPIPRAZOLE
     Route: 048
  5. ESOMEPRAZOLE [Suspect]
     Active Substance: ESOMEPRAZOLE
     Route: 048
  6. QUETIAPINE [Suspect]
     Active Substance: QUETIAPINE
     Route: 065

REACTIONS (2)
  - Coma [Unknown]
  - Intentional overdose [Unknown]
